FAERS Safety Report 10563328 (Version 2)
Quarter: 2014Q4

REPORT INFORMATION
  Report Type: Spontaneous
  Country: US (occurrence: US)
  Receive Date: 20141104
  Receipt Date: 20141126
  Transmission Date: 20150529
  Serious: Yes (Death, Hospitalization, Other)
  Sender: FDA-Public Use
  Company Number: US-GLAXOSMITHKLINE-US2014GSK014146

PATIENT
  Sex: Male
  Weight: 97 kg

DRUGS (6)
  1. ALBUTEROL NEBULIZER [Concomitant]
     Active Substance: ALBUTEROL
  2. MS CONTIN [Concomitant]
     Active Substance: MORPHINE SULFATE
  3. LASIX [Concomitant]
     Active Substance: FUROSEMIDE
  4. OXYCODONE HYDROCHLORIDE. [Concomitant]
     Active Substance: OXYCODONE HYDROCHLORIDE
  5. ROBITUSSIN (GUAIFENESIN) [Concomitant]
     Active Substance: GUAIFENESIN
  6. VOTRIENT [Suspect]
     Active Substance: PAZOPANIB HYDROCHLORIDE
     Indication: SARCOMA METASTATIC
     Dosage: 800 MG, QD
     Route: 048
     Dates: start: 20140703

REACTIONS (9)
  - Groin pain [Unknown]
  - Delirium [Unknown]
  - Dyspnoea [Unknown]
  - Increased upper airway secretion [Unknown]
  - Agitation [Unknown]
  - Disease progression [Fatal]
  - Wheezing [Unknown]
  - Anxiety [Unknown]
  - Oxygen saturation decreased [Unknown]
